FAERS Safety Report 11159261 (Version 1)
Quarter: 2015Q2

REPORT INFORMATION
  Report Type: Spontaneous
  Country: DK (occurrence: DK)
  Receive Date: 20150603
  Receipt Date: 20150603
  Transmission Date: 20150821
  Serious: Yes (Life-Threatening, Other)
  Sender: FDA-Public Use
  Company Number: DK-GLAXOSMITHKLINE-DK2015072424

PATIENT
  Age: 59 Year
  Sex: Male

DRUGS (9)
  1. CIPROFLOXACIN. [Concomitant]
     Active Substance: CIPROFLOXACIN
  2. FUROSEMID [Concomitant]
     Active Substance: FUROSEMIDE
  3. LAMOTRIGINE. [Suspect]
     Active Substance: LAMOTRIGINE
     Indication: EPILEPSY
     Dosage: DOSIS: 25 MG PR D?GN - UNDER OPTRAPNING.
     Route: 048
     Dates: start: 201502, end: 201504
  4. AMLODIPIN [Concomitant]
     Active Substance: AMLODIPINE BESYLATE
  5. JERN C ^MEDIC^ [Concomitant]
  6. FRISIUM [Concomitant]
     Active Substance: CLOBAZAM
  7. METFORMINHYDROCHLORID [Concomitant]
  8. PIPERACILLIN [Concomitant]
     Active Substance: PIPERACILLIN
  9. SIMVASTATIN. [Concomitant]
     Active Substance: SIMVASTATIN

REACTIONS (5)
  - Cardiac arrest [Recovered/Resolved]
  - Anaphylactic shock [Recovered/Resolved]
  - Rash [Recovered/Resolved]
  - Myelodysplastic syndrome [Unknown]
  - Dyspnoea [Recovered/Resolved]

NARRATIVE: CASE EVENT DATE: 20150405
